FAERS Safety Report 14953614 (Version 1)
Quarter: 2018Q2

REPORT INFORMATION
  Report Type: Spontaneous
  Country: FR (occurrence: FR)
  Receive Date: 20180530
  Receipt Date: 20180530
  Transmission Date: 20180711
  Serious: Yes (Death, Other)
  Sender: FDA-Public Use
  Company Number: FR-TEVA-2018-FR-897756

PATIENT
  Age: 64 Year
  Sex: Male
  Weight: 74 kg

DRUGS (7)
  1. CEFTRIAXONE. [Suspect]
     Active Substance: CEFTRIAXONE
     Indication: STREPTOCOCCAL INFECTION
     Route: 042
     Dates: start: 20180127, end: 20180127
  2. GENTAMICINE [Suspect]
     Active Substance: GENTAMICIN
     Indication: STREPTOCOCCAL INFECTION
     Route: 042
     Dates: start: 20180127, end: 20180130
  3. CEFPODOXIME [Suspect]
     Active Substance: CEFPODOXIME
     Indication: STREPTOCOCCAL INFECTION
     Route: 048
     Dates: start: 20180110
  4. CEFOTAXIME SODIQUE [Suspect]
     Active Substance: CEFOTAXIME SODIUM
     Indication: STREPTOCOCCAL INFECTION
     Route: 042
     Dates: start: 20180127, end: 20180216
  5. CIPROFLOXACINE (CHLORHYDRATE DE) [Suspect]
     Active Substance: CIPROFLOXACIN HYDROCHLORIDE
     Indication: STREPTOCOCCAL INFECTION
     Route: 042
     Dates: start: 20180127, end: 20180127
  6. PYOSTACINE [Suspect]
     Active Substance: PRISTINAMYCIN
     Indication: STREPTOCOCCAL INFECTION
     Route: 048
     Dates: start: 20180109
  7. AMOXICILLIN. [Suspect]
     Active Substance: AMOXICILLIN
     Indication: STREPTOCOCCAL INFECTION
     Route: 048
     Dates: start: 20180102, end: 20180108

REACTIONS (2)
  - Chronic myeloid leukaemia [Fatal]
  - Clostridium difficile colitis [Recovering/Resolving]

NARRATIVE: CASE EVENT DATE: 20180212
